FAERS Safety Report 11714122 (Version 1)
Quarter: 2015Q4

REPORT INFORMATION
  Report Type: Spontaneous
  Country: US (occurrence: US)
  Receive Date: 20151109
  Receipt Date: 20151109
  Transmission Date: 20160304
  Serious: No
  Sender: FDA-Public Use
  Company Number: US-PFIZER INC-2015280415

PATIENT
  Age: 48 Year
  Sex: Female

DRUGS (14)
  1. ZOLADEX [Concomitant]
     Active Substance: GOSERELIN ACETATE
     Dosage: 3.6 MG, (EVERY 28 DAYS)
     Route: 058
     Dates: start: 20150817
  2. LORAZEPAM. [Concomitant]
     Active Substance: LORAZEPAM
     Indication: ANXIETY
     Dosage: 1 MG, (TAKE 1 EVERY 6 TO 8 HOURS PRN)
     Dates: start: 20150812
  3. OMEPRAZOLE. [Concomitant]
     Active Substance: OMEPRAZOLE
     Dosage: 20 MG, 1X/DAY
     Route: 048
     Dates: start: 20150803
  4. LORAZEPAM. [Concomitant]
     Active Substance: LORAZEPAM
     Indication: NAUSEA
  5. PROMETHAZINE - CODEINE [Concomitant]
     Active Substance: CODEINE\PROMETHAZINE
     Dosage: (CODEINE PHOSPHATE 5.25 MG, PROMETHAZINE HYDROCHLORIDE 10 MG/5ML Q 3 HOURS PRN)
  6. CAPECITABINE. [Suspect]
     Active Substance: CAPECITABINE
     Dosage: UNK
  7. EMLA [Concomitant]
     Active Substance: LIDOCAINE\PRILOCAINE
     Dosage: 2.5 %, (APPLY DIME SIZE AMOUNT 1/2 HOUR PRIOR TO PORT STICK)
     Route: 061
     Dates: start: 20150813
  8. LORAZEPAM. [Concomitant]
     Active Substance: LORAZEPAM
     Indication: INSOMNIA
  9. VITAMIN D2 [Concomitant]
     Active Substance: ERGOCALCIFEROL
     Dosage: 50000 IU, 1X/DAY
  10. FEMARA [Suspect]
     Active Substance: LETROZOLE
     Indication: BREAST CANCER FEMALE
     Dosage: 2.5 MG, 1X/DAY
     Route: 048
     Dates: start: 20150813
  11. ZOMETA [Concomitant]
     Active Substance: ZOLEDRONIC ACID
     Dosage: 4 MG, (EVERY 4 WEEKS X 6 DOSES)
     Dates: start: 20150817
  12. IBRANCE [Suspect]
     Active Substance: PALBOCICLIB
     Indication: BREAST CANCER FEMALE
     Dosage: 125 MG, (DAILY FOR 21 DAYS, OFF 7 DAYS)
     Route: 048
     Dates: start: 20150819
  13. PROCHLORPERAZINE MALEATE. [Concomitant]
     Active Substance: PROCHLORPERAZINE MALEATE
     Indication: NAUSEA
     Dosage: 10 MG, (EVERY 6 TO 8 HOURS)
     Dates: start: 20150812
  14. ZITHROMAX [Concomitant]
     Active Substance: AZITHROMYCIN DIHYDRATE
     Dosage: 250 MG, (TAKE 2 TABLETS X 1 DAY, THEN TAKE 1 TABLET X 4 DAYS)

REACTIONS (3)
  - Breast cancer female [Unknown]
  - Disease progression [Unknown]
  - Abdominal pain [Unknown]

NARRATIVE: CASE EVENT DATE: 201508
